FAERS Safety Report 22601673 (Version 1)
Quarter: 2023Q2

REPORT INFORMATION
  Report Type: Spontaneous
  Country: CN (occurrence: CN)
  Receive Date: 20230614
  Receipt Date: 20230614
  Transmission Date: 20230722
  Serious: Yes (Life-Threatening)
  Sender: FDA-Public Use
  Company Number: CN-PFIZER INC-PV202300103432

PATIENT
  Age: 65 Year
  Sex: Male
  Weight: 63 kg

DRUGS (3)
  1. LINEZOLID [Suspect]
     Active Substance: LINEZOLID
     Indication: Cardiomyopathy
     Dosage: 600 MG, 2X/DAY
     Route: 041
     Dates: start: 20230326, end: 20230326
  2. VANCOMYCIN HYDROCHLORIDE [Suspect]
     Active Substance: VANCOMYCIN HYDROCHLORIDE
     Indication: Cardiomyopathy
     Dosage: 0.5 G, 2X/DAY
     Route: 041
     Dates: start: 20230325, end: 20230326
  3. SODIUM CHLORIDE [Concomitant]
     Active Substance: SODIUM CHLORIDE
     Dosage: 100 ML

REACTIONS (9)
  - Ventricular arrhythmia [Recovered/Resolved]
  - Blood pressure decreased [Recovered/Resolved]
  - Chest discomfort [Recovered/Resolved]
  - Hyperhidrosis [Recovered/Resolved]
  - Discomfort [Recovered/Resolved]
  - Atrial fibrillation [Recovered/Resolved]
  - Ventricular extrasystoles [Recovered/Resolved]
  - Tachypnoea [Recovered/Resolved]
  - Off label use [Unknown]

NARRATIVE: CASE EVENT DATE: 20230326
